FAERS Safety Report 22946849 (Version 2)
Quarter: 2023Q4

REPORT INFORMATION
  Report Type: Spontaneous
  Country: JP (occurrence: JP)
  Receive Date: 20230915
  Receipt Date: 20231213
  Transmission Date: 20240109
  Serious: Yes (Other)
  Sender: FDA-Public Use
  Company Number: JP-ONO-2023JP022696

PATIENT
  Age: 7 Decade
  Sex: Male

DRUGS (3)
  1. OPDIVO [Suspect]
     Active Substance: NIVOLUMAB
     Indication: Head and neck cancer
     Route: 041
  2. PACLITAXEL [Suspect]
     Active Substance: PACLITAXEL
     Indication: Head and neck cancer
  3. ERBITUX [Suspect]
     Active Substance: CETUXIMAB
     Indication: Head and neck cancer

REACTIONS (3)
  - Cytokine release syndrome [Unknown]
  - Neutrophil count increased [Unknown]
  - Malignant neoplasm progression [Unknown]
